FAERS Safety Report 6558670-8 (Version None)
Quarter: 2010Q1

REPORT INFORMATION
  Report Type: 
  Country: None (occurrence: None)
  Receive Date: 20100129
  Receipt Date: 20100127
  Transmission Date: 20100710
  Serious: Yes (Other)
  Sender: FDA-Public Use
  Company Number: B0629381A

PATIENT
  Sex: Male

DRUGS (1)
  1. NIQUITIN CQ 2MG LOZENGE, MINT [Suspect]

REACTIONS (1)
  - DRUG ABUSE [None]
